FAERS Safety Report 20399203 (Version 2)
Quarter: 2022Q1

REPORT INFORMATION
  Report Type: Spontaneous
  Country: US (occurrence: US)
  Receive Date: 20220131
  Receipt Date: 20220201
  Transmission Date: 20220423
  Serious: No
  Sender: FDA-Public Use
  Company Number: US-ABBVIE-21K-163-4040115-00

PATIENT
  Sex: Female

DRUGS (1)
  1. HUMIRA [Suspect]
     Active Substance: ADALIMUMAB
     Indication: Product used for unknown indication
     Route: 058

REACTIONS (8)
  - Nail growth abnormal [Unknown]
  - Koilonychia [Unknown]
  - Clubbing [Unknown]
  - Psoriatic arthropathy [Unknown]
  - Arthritis [Unknown]
  - Onychoclasis [Unknown]
  - Inflammation [Unknown]
  - Pain in extremity [Unknown]

NARRATIVE: CASE EVENT DATE: 20210101
